FAERS Safety Report 18909982 (Version 1)
Quarter: 2021Q1

REPORT INFORMATION
  Report Type: Spontaneous
  Country: US (occurrence: US)
  Receive Date: 20210218
  Receipt Date: 20210218
  Transmission Date: 20210420
  Serious: Yes (Hospitalization)
  Sender: FDA-Public Use
  Company Number: None

PATIENT
  Age: 12 Year
  Sex: Male

DRUGS (10)
  1. VALACYCLOVIR [Concomitant]
     Active Substance: VALACYCLOVIR HYDROCHLORIDE
     Dates: start: 20210202
  2. DOK [Concomitant]
     Active Substance: DOCUSATE SODIUM
     Dates: start: 20210122
  3. SUCRALFATE. [Concomitant]
     Active Substance: SUCRALFATE
     Dates: start: 20210122
  4. FAMOTIDINE. [Concomitant]
     Active Substance: FAMOTIDINE
     Dates: start: 20210202
  5. SILACE [Concomitant]
     Active Substance: DOCUSATE SODIUM
     Dates: start: 20210114
  6. SMZ/TMP [Concomitant]
     Active Substance: SULFAMETHOXAZOLE\TRIMETHOPRIM
     Dates: start: 20210122
  7. MELATONIN [Concomitant]
     Active Substance: MELATONIN
     Dates: start: 20210114
  8. POTASSIUM CHROLIRE MICRONIZED [Concomitant]
     Dates: start: 20210202
  9. NEUPOGEN [Suspect]
     Active Substance: FILGRASTIM
     Indication: VIRAL INFECTION
     Dosage: ?          OTHER FREQUENCY:1QD FOR 10DAYS;?
     Route: 058
     Dates: start: 20210114
  10. STIMULANT [Concomitant]
     Active Substance: UNSPECIFIED INGREDIENT
     Dates: start: 20210215

REACTIONS (1)
  - Malaise [None]

NARRATIVE: CASE EVENT DATE: 20210217
